FAERS Safety Report 11180013 (Version 1)
Quarter: 2015Q2

REPORT INFORMATION
  Report Type: Spontaneous
  Country: US (occurrence: US)
  Receive Date: 20150611
  Receipt Date: 20150611
  Transmission Date: 20150821
  Serious: Yes (Other)
  Sender: FDA-Public Use
  Company Number: US-TEVA-549869USA

PATIENT
  Age: 53 Year
  Sex: Male

DRUGS (3)
  1. DULOXETINE [Suspect]
     Active Substance: DULOXETINE
     Indication: MAJOR DEPRESSION
     Route: 048
     Dates: start: 201408
  2. DULOXETINE [Suspect]
     Active Substance: DULOXETINE
     Indication: FIBROMYALGIA
  3. DULOXETINE [Suspect]
     Active Substance: DULOXETINE
     Indication: ANGER

REACTIONS (7)
  - Violence-related symptom [Unknown]
  - Emotional poverty [Unknown]
  - Suicidal ideation [Unknown]
  - Libido decreased [Unknown]
  - Disturbance in attention [Unknown]
  - Sexual dysfunction [Unknown]
  - Apathy [Unknown]

NARRATIVE: CASE EVENT DATE: 20150210
